FAERS Safety Report 9367117 (Version 1)
Quarter: 2013Q2

REPORT INFORMATION
  Report Type: Spontaneous
  Country: US (occurrence: US)
  Receive Date: 20130625
  Receipt Date: 20130625
  Transmission Date: 20140414
  Serious: No
  Sender: FDA-Public Use
  Company Number: US-BAYER-2013-076344

PATIENT
  Age: 86 Year
  Sex: Male

DRUGS (1)
  1. STIVARGA [Suspect]
     Dosage: UNK
     Dates: start: 20130516

REACTIONS (1)
  - Palmar-plantar erythrodysaesthesia syndrome [None]
